FAERS Safety Report 19895991 (Version 1)
Quarter: 2021Q3

REPORT INFORMATION
  Report Type: Spontaneous
  Country: DE (occurrence: DE)
  Receive Date: 20210929
  Receipt Date: 20210929
  Transmission Date: 20211014
  Serious: Yes (Other)
  Sender: FDA-Public Use
  Company Number: DE-MYLANLABS-2021M1065975

PATIENT
  Age: 76 Year
  Sex: Male

DRUGS (10)
  1. FUROSEMIDE. [Concomitant]
     Active Substance: FUROSEMIDE
     Indication: DIURETIC THERAPY
     Dosage: UNK
  2. METFORMIN [Suspect]
     Active Substance: METFORMIN HYDROCHLORIDE
     Indication: DIABETES MELLITUS
     Dosage: UNK UNK, QD (2 IN 1 DAY)
     Dates: end: 20210511
  3. PANTOPRAZOLE [Concomitant]
     Active Substance: PANTOPRAZOLE
     Indication: GASTRIC DISORDER
     Dosage: UNK
  4. METOHEXAL SUCC [Concomitant]
     Active Substance: METOPROLOL SUCCINATE
     Indication: BLOOD PRESSURE INCREASED
     Dosage: UNK (95)
  5. SIMVA [Concomitant]
     Active Substance: SIMVASTATIN
     Dosage: UNK
  6. INSULIN [Suspect]
     Active Substance: INSULIN NOS
     Indication: DIABETES MELLITUS
     Dosage: 3 INJECTIONS DAILY
     Dates: end: 202104
  7. INSULIN [Suspect]
     Active Substance: INSULIN NOS
     Dosage: INJECTION IN THE MORNING AND AT NOON
     Dates: start: 202104
  8. JANUVIA [Suspect]
     Active Substance: SITAGLIPTIN PHOSPHATE
     Indication: DIABETES MELLITUS
     Dosage: 100 MILLIGRAM, QD (50 MG TABLET, TWICE DAILY (MORNING AND EVENING; 1?0?1))
     Route: 048
     Dates: start: 202104, end: 20210511
  9. RAMILICH [Concomitant]
     Active Substance: RAMIPRIL
     Dosage: 5 MILLIGRAM
  10. TAMSULOSIN [Concomitant]
     Active Substance: TAMSULOSIN
     Indication: PROSTATIC DISORDER
     Dosage: UNK

REACTIONS (9)
  - Arthralgia [Not Recovered/Not Resolved]
  - Joint swelling [Not Recovered/Not Resolved]
  - Dizziness [Not Recovered/Not Resolved]
  - Swelling [Not Recovered/Not Resolved]
  - Renal failure [Unknown]
  - Pain in extremity [Not Recovered/Not Resolved]
  - Peripheral swelling [Not Recovered/Not Resolved]
  - Myalgia [Not Recovered/Not Resolved]
  - Inappropriate schedule of product administration [Unknown]

NARRATIVE: CASE EVENT DATE: 2021
